FAERS Safety Report 5749093-X (Version None)
Quarter: 2008Q2

REPORT INFORMATION
  Report Type: 
  Country: None (occurrence: None)
  Receive Date: 20080522
  Receipt Date: 20080512
  Transmission Date: 20081010
  Serious: Yes (Hospitalization, Disabling)
  Sender: FDA-Public Use
  Company Number: 080509-0000412

PATIENT
  Age: 26 Year
  Sex: Male

DRUGS (1)
  1. WINSTROL [Suspect]
     Indication: DRUG USE FOR UNKNOWN INDICATION
     Dosage: 10 MG; QD

REACTIONS (25)
  - APHASIA [None]
  - APOLIPOPROTEIN B INCREASED [None]
  - BLOOD CHOLESTEROL INCREASED [None]
  - CENTRAL NERVOUS SYSTEM LESION [None]
  - CEREBROVASCULAR DISORDER [None]
  - DECEREBRATION [None]
  - DRUG ABUSE [None]
  - DYSARTHRIA [None]
  - EYE MOVEMENT DISORDER [None]
  - HEMIPARESIS [None]
  - HIGH DENSITY LIPOPROTEIN INCREASED [None]
  - HYPERREFLEXIA [None]
  - HYPERTONIA [None]
  - ISCHAEMIC STROKE [None]
  - LOSS OF CONSCIOUSNESS [None]
  - MUSCLE SPASTICITY [None]
  - PARALYSIS [None]
  - PLATELET AGGREGATION [None]
  - POSTURING [None]
  - PROTEIN S INCREASED [None]
  - PUPIL FIXED [None]
  - PUPILS UNEQUAL [None]
  - RED BLOOD CELL SEDIMENTATION RATE INCREASED [None]
  - TENDON DISORDER [None]
  - VOMITING [None]
